FAERS Safety Report 9176592 (Version 3)
Quarter: 2013Q3

REPORT INFORMATION
  Report Type: Spontaneous
  Country: ES (occurrence: ES)
  Receive Date: 20130321
  Receipt Date: 20130717
  Transmission Date: 20140515
  Serious: Yes (Other)
  Sender: FDA-Public Use
  Company Number: ES-AMGEN-ESPSP2013019348

PATIENT
  Age: 42 Year
  Sex: Male

DRUGS (7)
  1. ENBREL [Suspect]
     Indication: PSORIASIS
     Dosage: 50 MG, 2 TIMES/WK
     Route: 065
     Dates: start: 20080408
  2. ENBREL [Suspect]
     Dosage: 25 MG, 2 TIMES/WK
     Route: 065
     Dates: start: 20081117, end: 20090217
  3. ENBREL [Suspect]
     Dosage: 50 MG, 2 TIMES/WK
     Route: 065
     Dates: start: 20090625, end: 20090924
  4. ENBREL [Suspect]
     Dosage: 25 MG, 2 TIMES/WK
     Route: 065
     Dates: start: 20090924, end: 20100416
  5. ENBREL [Suspect]
     Dosage: 50 MG, 2 TIMES/WK
     Route: 065
     Dates: start: 20100416, end: 20120124
  6. ENBREL [Suspect]
     Dosage: 50 MG, QWK
     Route: 065
     Dates: start: 20120124, end: 20130122
  7. ENBREL [Suspect]
     Dosage: 25 MG, QWK
     Route: 065
     Dates: start: 20130122, end: 20130305

REACTIONS (5)
  - White blood cell count decreased [Unknown]
  - Granuloma [Unknown]
  - Pulmonary sarcoidosis [Unknown]
  - Lymphadenopathy [Unknown]
  - Leukopenia [Unknown]
